FAERS Safety Report 6610406-8 (Version None)
Quarter: 2010Q1

REPORT INFORMATION
  Report Type: 
  Country: None (occurrence: None)
  Receive Date: 20100302
  Receipt Date: 20100223
  Transmission Date: 20100710
  Serious: Yes (Other)
  Sender: FDA-Public Use
  Company Number: US-JNJFOC-20100210526

PATIENT
  Sex: Female
  Weight: 64.86 kg

DRUGS (2)
  1. CONCERTA [Suspect]
     Indication: ATTENTION DEFICIT/HYPERACTIVITY DISORDER
     Route: 048
  2. DIOVAN [Suspect]
     Indication: DRUG USE FOR UNKNOWN INDICATION
     Route: 065

REACTIONS (5)
  - AGITATION [None]
  - DRUG DISPENSING ERROR [None]
  - DRUG EXPOSURE DURING PREGNANCY [None]
  - INCREASED APPETITE [None]
  - INTRA-UTERINE DEATH [None]
